FAERS Safety Report 6429127-X (Version None)
Quarter: 2009Q4

REPORT INFORMATION
  Report Type: 
  Country: None (occurrence: None)
  Receive Date: 20091030
  Receipt Date: 20091020
  Transmission Date: 20100525
  Serious: No
  Sender: FDA-Public Use
  Company Number: 002162

PATIENT
  Sex: Female
  Weight: 88.6 kg

DRUGS (15)
  1. LACOSAMIDE [Suspect]
     Indication: CONVULSION
     Dosage: 100 MG BID ORAL
     Route: 048
     Dates: start: 20090901
  2. LAMICTAL [Concomitant]
  3. TOPAMAX [Concomitant]
  4. ACTOS [Concomitant]
  5. METFORMIN HCL [Concomitant]
  6. ZOLOFT [Concomitant]
  7. ZYPREXA [Concomitant]
  8. NAPROXEN [Concomitant]
  9. LORAZEPAM [Concomitant]
  10. LIPITOR [Concomitant]
  11. LISINOPRIL [Concomitant]
  12. NITROFUR-C [Concomitant]
  13. VITAMIN B12 NOS [Concomitant]
  14. VITAMIN D [Concomitant]
  15. ANTIFLU-DES [Concomitant]

REACTIONS (7)
  - DIARRHOEA [None]
  - DIZZINESS [None]
  - GAIT DISTURBANCE [None]
  - HEART RATE INCREASED [None]
  - SYNCOPE [None]
  - VISUAL IMPAIRMENT [None]
  - VOMITING [None]
